FAERS Safety Report 4296289-2 (Version None)
Quarter: 2004Q1

REPORT INFORMATION
  Report Type: 
  Country: None (occurrence: None)
  Receive Date: 20040217
  Receipt Date: 20031008
  Transmission Date: 20041129
  Serious: No
  Sender: FDA-Public Use
  Company Number: US-GLAXOSMITHKLINE-A0429526A

PATIENT
  Age: 40 Year
  Sex: Female

DRUGS (6)
  1. LAMICTAL [Suspect]
     Indication: DEPRESSION
     Dosage: 300MG PER DAY
     Route: 048
     Dates: end: 20031006
  2. WELLBUTRIN [Concomitant]
  3. LEXAPRO [Concomitant]
  4. DEXEDRINE [Concomitant]
  5. PREVACID [Concomitant]
  6. BENADRYL [Concomitant]

REACTIONS (1)
  - RASH [None]
